FAERS Safety Report 10220371 (Version 3)
Quarter: 2014Q4

REPORT INFORMATION
  Report Type: Report from Study
  Country: US (occurrence: US)
  Receive Date: 20140606
  Receipt Date: 20141106
  Transmission Date: 20150528
  Serious: Yes (Hospitalization)
  Sender: FDA-Public Use
  Company Number: US-BIOGENIDEC-2014BI052479

PATIENT
  Age: 39 Year
  Sex: Female

DRUGS (1)
  1. TYSABRI [Suspect]
     Active Substance: NATALIZUMAB
     Indication: MULTIPLE SCLEROSIS
     Route: 042
     Dates: start: 20120711

REACTIONS (5)
  - Intestinal obstruction [Recovered/Resolved]
  - Cholelithiasis [Not Recovered/Not Resolved]
  - Haemorrhoids [Recovered/Resolved]
  - Pain [Recovered/Resolved]
  - Abdominal hernia obstructive [Not Recovered/Not Resolved]

NARRATIVE: CASE EVENT DATE: 20140504
